FAERS Safety Report 25323198 (Version 2)
Quarter: 2025Q2

REPORT INFORMATION
  Report Type: Report from Study
  Country: CA (occurrence: CA)
  Receive Date: 20250516
  Receipt Date: 20250520
  Transmission Date: 20250717
  Serious: Yes (Death, Other)
  Sender: SANDOZ
  Company Number: CA-002147023-NVSC2023CA032474

PATIENT
  Age: 87 Year
  Sex: Male
  Weight: 76 kg

DRUGS (1)
  1. PIRFENIDONE [Suspect]
     Active Substance: PIRFENIDONE
     Indication: Idiopathic pulmonary fibrosis
     Dosage: 801 MG, TID
     Route: 048
     Dates: start: 20220915

REACTIONS (4)
  - Death [Fatal]
  - Total lung capacity abnormal [Unknown]
  - Irregular breathing [Unknown]
  - Cough [Unknown]

NARRATIVE: CASE EVENT DATE: 20250113
